FAERS Safety Report 15500363 (Version 1)
Quarter: 2018Q4

REPORT INFORMATION
  Report Type: Spontaneous
  Country: US (occurrence: US)
  Receive Date: 20181015
  Receipt Date: 20181015
  Transmission Date: 20190205
  Serious: No
  Sender: FDA-Public Use
  Company Number: US-DEPOMED, INC.-US-2017DEP002072

PATIENT

DRUGS (7)
  1. PERCOCET                           /00446701/ [Concomitant]
     Active Substance: ACETAMINOPHEN\OXYCODONE HYDROCHLORIDE\OXYCODONE TEREPHTHALATE
     Indication: BREAKTHROUGH PAIN
     Dosage: UNK
     Dates: end: 201801
  2. TYLENOL [Concomitant]
     Active Substance: ACETAMINOPHEN
     Indication: PAIN
     Dosage: 2 TABLETS 3 TIMES A DAY AS NEEDED
     Route: 048
     Dates: start: 2001, end: 2002
  3. NUCYNTA ER [Suspect]
     Active Substance: TAPENTADOL HYDROCHLORIDE
     Dosage: 200 MG, BID
     Route: 048
     Dates: start: 2017, end: 20180218
  4. ISOSORBI DINIT [Concomitant]
     Indication: CARDIAC DISORDER
     Dosage: 120 MG, QD
     Route: 048
  5. NUCYNTA ER [Suspect]
     Active Substance: TAPENTADOL HYDROCHLORIDE
     Indication: PAIN
     Dosage: 200 MG, BID
     Route: 048
     Dates: start: 201701, end: 20171018
  6. OXYCODONE [Concomitant]
     Active Substance: OXYCODONE
     Indication: BREAKTHROUGH PAIN
     Dosage: 15 MG, QID
     Route: 048
     Dates: start: 201801
  7. RANEXA [Concomitant]
     Active Substance: RANOLAZINE
     Indication: CARDIAC DISORDER
     Dosage: 1000 MG, BID
     Route: 048

REACTIONS (6)
  - Drug ineffective [Unknown]
  - Medication error [Unknown]
  - Vomiting [Recovered/Resolved]
  - Abdominal discomfort [Not Recovered/Not Resolved]
  - Nausea [Recovered/Resolved]
  - Drug dose titration not performed [Unknown]

NARRATIVE: CASE EVENT DATE: 2017
